FAERS Safety Report 4934246-0 (Version None)
Quarter: 2006Q1

REPORT INFORMATION
  Report Type: 
  Country: None (occurrence: None)
  Receive Date: 20060302
  Receipt Date: 20060215
  Transmission Date: 20060701
  Serious: Yes (Death, Other)
  Sender: FDA-Public Use
  Company Number: WAES 0602CAN00070

PATIENT
  Age: 23 Year
  Sex: Male

DRUGS (1)
  1. CANCIDAS [Suspect]
     Indication: CANDIDIASIS
     Dosage: INJ
     Dates: start: 20060201, end: 20060206

REACTIONS (3)
  - ACIDOSIS [None]
  - LOSS OF CONSCIOUSNESS [None]
  - VENTRICULAR FIBRILLATION [None]
